FAERS Safety Report 8213362-4 (Version None)
Quarter: 2012Q1

REPORT INFORMATION
  Report Type: 
  Country: None (occurrence: None)
  Receive Date: 20120315
  Receipt Date: 20120312
  Transmission Date: 20120608
  Serious: No
  Sender: FDA-Public Use
  Company Number: US-PFIZER INC-2012029514

PATIENT
  Sex: Male
  Weight: 111 kg

DRUGS (5)
  1. LISINOPRIL [Concomitant]
     Indication: CARDIAC DISORDER
     Dosage: UNK
  2. LYRICA [Suspect]
     Indication: LIMB DISCOMFORT
     Dosage: 300 MG, 2X/DAY
     Route: 048
     Dates: end: 20120110
  3. DIGOXIN [Concomitant]
     Indication: CARDIAC DISORDER
     Dosage: UNK
  4. LYRICA [Suspect]
     Indication: BACK DISORDER
  5. TIKOSYN [Concomitant]
     Dosage: UNK

REACTIONS (2)
  - ERYTHEMA [None]
  - BURNING SENSATION [None]
